FAERS Safety Report 8563949-4 (Version None)
Quarter: 2012Q3

REPORT INFORMATION
  Report Type: 
  Country: None (occurrence: None)
  Receive Date: 20120803
  Receipt Date: 20120727
  Transmission Date: 20120928
  Serious: Yes (Hospitalization)
  Sender: FDA-Public Use
  Company Number: PHHY2012JP066021

PATIENT
  Age: 70 Year

DRUGS (2)
  1. TASIGNA [Suspect]
     Indication: CHRONIC MYELOID LEUKAEMIA
     Dosage: 300 MG, DAILY
     Route: 048
     Dates: start: 20120601, end: 20120701
  2. ROZEREM [Concomitant]
     Route: 048

REACTIONS (6)
  - ABDOMINAL PAIN [None]
  - INSOMNIA [None]
  - MENTAL DISORDER [None]
  - EMOTIONAL DISTRESS [None]
  - HELICOBACTER TEST POSITIVE [None]
  - GASTRIC PERFORATION [None]
